FAERS Safety Report 5959542-X (Version None)
Quarter: 2008Q4

REPORT INFORMATION
  Report Type: 
  Country: None (occurrence: None)
  Receive Date: 20081117
  Receipt Date: 20081029
  Transmission Date: 20090506
  Serious: Yes (Death, Life-Threatening, Hospitalization)
  Sender: FDA-Public Use
  Company Number: DSA_32620_2008

PATIENT
  Sex: Female

DRUGS (7)
  1. LORAZEPAM [Suspect]
     Indication: DRUG USE FOR UNKNOWN INDICATION
     Dosage: 1 MG QD ORAL
     Route: 048
     Dates: start: 20080609, end: 20080725
  2. FLUANXOL /00109702 (FLUANXOL - FLUPENTIXOL DIHYDROCHLORIDE) (NOT SPECI [Suspect]
     Indication: DRUG USE FOR UNKNOWN INDICATION
     Dosage: 5 MG QD ORAL; 10 MG QD ORAL; 15MG QD ORAL
     Route: 048
     Dates: start: 20080620, end: 20080625
  3. FLUANXOL /00109702 (FLUANXOL - FLUPENTIXOL DIHYDROCHLORIDE) (NOT SPECI [Suspect]
     Indication: DRUG USE FOR UNKNOWN INDICATION
     Dosage: 5 MG QD ORAL; 10 MG QD ORAL; 15MG QD ORAL
     Route: 048
     Dates: start: 20080626, end: 20080705
  4. FLUANXOL /00109702 (FLUANXOL - FLUPENTIXOL DIHYDROCHLORIDE) (NOT SPECI [Suspect]
     Indication: DRUG USE FOR UNKNOWN INDICATION
     Dosage: 5 MG QD ORAL; 10 MG QD ORAL; 15MG QD ORAL
     Route: 048
     Dates: start: 20080706, end: 20080725
  5. SEROQUEL [Suspect]
     Indication: DRUG USE FOR UNKNOWN INDICATION
     Dosage: STEPS 500, 800, 1000, 1200 AND 1400 MG ORAL; 1000 MG QD ORAL; 500 MG QD ORAL
     Route: 048
     Dates: start: 20080205, end: 20080625
  6. SEROQUEL [Suspect]
     Indication: DRUG USE FOR UNKNOWN INDICATION
     Dosage: STEPS 500, 800, 1000, 1200 AND 1400 MG ORAL; 1000 MG QD ORAL; 500 MG QD ORAL
     Route: 048
     Dates: start: 20080626, end: 20080716
  7. SEROQUEL [Suspect]
     Indication: DRUG USE FOR UNKNOWN INDICATION
     Dosage: STEPS 500, 800, 1000, 1200 AND 1400 MG ORAL; 1000 MG QD ORAL; 500 MG QD ORAL
     Route: 048
     Dates: start: 20080717, end: 20080725

REACTIONS (4)
  - ANOXIC ENCEPHALOPATHY [None]
  - ASPHYXIA [None]
  - GLUTAMATE DEHYDROGENASE INCREASED [None]
  - PNEUMONIA ASPIRATION [None]
